FAERS Safety Report 25839010 (Version 1)
Quarter: 2025Q3

REPORT INFORMATION
  Report Type: Spontaneous
  Country: CA (occurrence: CA)
  Receive Date: 20250924
  Receipt Date: 20250924
  Transmission Date: 20251021
  Serious: Yes (Other)
  Sender: ACCORD
  Company Number: None

PATIENT
  Age: 79 Year
  Sex: Female

DRUGS (6)
  1. CARBOPLATIN [Suspect]
     Active Substance: CARBOPLATIN
     Indication: Neoplasm malignant
     Route: 042
  2. DEXAMETHASONE [Concomitant]
     Active Substance: DEXAMETHASONE
     Route: 014
  3. FAMOTIDINE [Concomitant]
     Active Substance: FAMOTIDINE
  4. GRANISETRON [Concomitant]
     Active Substance: GRANISETRON
  5. PERINDOPRIL [Concomitant]
     Active Substance: PERINDOPRIL
  6. RABEPRAZOLE [Concomitant]
     Active Substance: RABEPRAZOLE

REACTIONS (2)
  - Infusion related reaction [Recovered/Resolved]
  - Vital capacity abnormal [Recovered/Resolved]
